FAERS Safety Report 9913440 (Version 3)
Quarter: 2014Q1

REPORT INFORMATION
  Report Type: Spontaneous
  Country: ZA (occurrence: ZA)
  Receive Date: 20140220
  Receipt Date: 20140327
  Transmission Date: 20141002
  Serious: Yes (Hospitalization)
  Sender: FDA-Public Use
  Company Number: ZA-ASTELLAS-2014EU001403

PATIENT
  Age: 0 Day
  Sex: Female
  Weight: .9 kg

DRUGS (5)
  1. PROGRAF [Suspect]
     Indication: FOETAL EXPOSURE DURING PREGNANCY
     Dosage: 3 MG, BID
     Route: 064
  2. ADVAGRAF [Suspect]
     Indication: FOETAL EXPOSURE DURING PREGNANCY
     Dosage: UNK
     Route: 063
  3. LIPITOR [Concomitant]
     Indication: FOETAL EXPOSURE DURING PREGNANCY
     Dosage: 5 MG, UID/QD
     Route: 064
  4. CLEXANE [Concomitant]
     Indication: FOETAL EXPOSURE DURING PREGNANCY
     Dosage: 40 MG, OTHER
     Route: 064
     Dates: start: 20131205
  5. LASIX                              /00032601/ [Concomitant]
     Indication: FOETAL EXPOSURE DURING PREGNANCY
     Dosage: 40 MG, PRN
     Route: 064

REACTIONS (2)
  - Exposure during breast feeding [Unknown]
  - Premature baby [Unknown]
